FAERS Safety Report 17898775 (Version 3)
Quarter: 2020Q3

REPORT INFORMATION
  Report Type: Report from Study
  Country: US (occurrence: US)
  Receive Date: 20200615
  Receipt Date: 20200714
  Transmission Date: 20201103
  Serious: Yes (Death, Hospitalization)
  Sender: FDA-Public Use
  Company Number: US-ACTELION-A-NJ2017-161206

PATIENT
  Age: 70 Year
  Sex: Female
  Weight: 66.21 kg

DRUGS (10)
  1. UPTRAVI [Suspect]
     Active Substance: SELEXIPAG
     Dosage: 600 MCG, BID
     Route: 048
  2. OPSUMIT [Suspect]
     Active Substance: MACITENTAN
     Dosage: 10 MG, BID
     Route: 048
     Dates: end: 20200428
  3. ADEMPAS [Concomitant]
     Active Substance: RIOCIGUAT
  4. UPTRAVI [Suspect]
     Active Substance: SELEXIPAG
     Dosage: 600 MCG, TID
     Route: 048
  5. CELLCEPT [Concomitant]
     Active Substance: MYCOPHENOLATE MOFETIL\MYCOPHENOLATE MOFETIL HYDROCHLORIDE
     Dosage: 100 MG, TID
     Route: 048
     Dates: start: 20190813, end: 20200428
  6. FUROSEMIDE. [Concomitant]
     Active Substance: FUROSEMIDE
     Dosage: 8 MG, BID
     Route: 048
     Dates: start: 20150713, end: 20200428
  7. OPSUMIT [Suspect]
     Active Substance: MACITENTAN
     Indication: PULMONARY HYPERTENSION
     Dosage: 10 MG, QD
     Route: 048
     Dates: start: 20141126
  8. TRAMADOL. [Concomitant]
     Active Substance: TRAMADOL
     Dosage: 50 MG, Q6HRS/PRN
     Dates: start: 20190925, end: 20200428
  9. UPTRAVI [Suspect]
     Active Substance: SELEXIPAG
     Indication: PULMONARY HYPERTENSION
     Dosage: 400 MCG, BID
     Route: 048
     Dates: start: 20141126
  10. BACTRIM DS [Concomitant]
     Active Substance: SULFAMETHOXAZOLE\TRIMETHOPRIM
     Dosage: 80 TO 160 MG, BID
     Route: 048
     Dates: start: 20191009, end: 20200428

REACTIONS (34)
  - Chest pain [Unknown]
  - Productive cough [Unknown]
  - Joint swelling [Unknown]
  - Weight decreased [Unknown]
  - Dyspnoea exertional [Recovering/Resolving]
  - Cardiomegaly [Unknown]
  - Diarrhoea [Unknown]
  - Cough [Unknown]
  - Pleural effusion [Unknown]
  - Antinuclear antibody positive [Unknown]
  - Pericardial effusion [Unknown]
  - Decreased appetite [Unknown]
  - Walking distance test abnormal [Unknown]
  - Death [Fatal]
  - Hospitalisation [Unknown]
  - Dyspnoea [Recovering/Resolving]
  - Syncope [Unknown]
  - Somnolence [Recovering/Resolving]
  - Dizziness postural [Unknown]
  - Gastrointestinal wall thickening [Unknown]
  - Pulmonary function test abnormal [Unknown]
  - Lung diffusion test decreased [Unknown]
  - Fluid retention [Unknown]
  - Inferior vena cava dilatation [Unknown]
  - Pulmonary hypertension [Recovering/Resolving]
  - Dizziness [Unknown]
  - Feeling hot [Recovering/Resolving]
  - Wheezing [Unknown]
  - Lung opacity [Unknown]
  - Right ventricular dysfunction [Unknown]
  - Brain natriuretic peptide abnormal [Unknown]
  - Oedema peripheral [Recovering/Resolving]
  - Unevaluable event [Unknown]
  - Forced vital capacity decreased [Unknown]

NARRATIVE: CASE EVENT DATE: 2017
